FAERS Safety Report 7511961-6 (Version None)
Quarter: 2011Q2

REPORT INFORMATION
  Report Type: 
  Country: None (occurrence: None)
  Receive Date: 20110531
  Receipt Date: 20110517
  Transmission Date: 20111010
  Serious: Yes (Life-Threatening, Hospitalization, Other)
  Sender: FDA-Public Use
  Company Number: PHHY2011DE42276

PATIENT
  Age: 78 Year
  Sex: Male
  Weight: 111 kg

DRUGS (1)
  1. RASILEZ [Suspect]
     Dosage: 300 MG, UNK
     Route: 048
     Dates: start: 20110202, end: 20110206

REACTIONS (1)
  - RENAL FAILURE ACUTE [None]
